FAERS Safety Report 14698557 (Version 6)
Quarter: 2018Q2

REPORT INFORMATION
  Report Type: Report from Study
  Country: CA (occurrence: CA)
  Receive Date: 20180330
  Receipt Date: 20180525
  Transmission Date: 20180711
  Serious: Yes (Hospitalization, Other)
  Sender: FDA-Public Use
  Company Number: CA-TAKEDA-2018TUS002042

PATIENT
  Age: 78 Year
  Sex: Female

DRUGS (3)
  1. PREDNISONE. [Suspect]
     Active Substance: PREDNISONE
     Indication: CROHN^S DISEASE
     Dosage: UNK
     Route: 065
     Dates: start: 20171122
  2. VEDOLIZUMAB [Suspect]
     Active Substance: VEDOLIZUMAB
     Dosage: 300 MG, Q4WEEKS
     Route: 042
     Dates: start: 20180507
  3. VEDOLIZUMAB [Suspect]
     Active Substance: VEDOLIZUMAB
     Indication: CROHN^S DISEASE
     Dosage: 300 MG, UNK
     Route: 042
     Dates: start: 20171219

REACTIONS (12)
  - Deep vein thrombosis [Unknown]
  - Renal failure [Unknown]
  - Pulmonary embolism [Unknown]
  - Stomatitis [Unknown]
  - Night sweats [Unknown]
  - Secretion discharge [Unknown]
  - Diarrhoea [Unknown]
  - Pruritus [Unknown]
  - Crohn^s disease [Unknown]
  - Nausea [Unknown]
  - Off label use [Unknown]
  - Rash pruritic [Unknown]

NARRATIVE: CASE EVENT DATE: 20180119
